FAERS Safety Report 10423750 (Version 1)
Quarter: 2014Q3

REPORT INFORMATION
  Report Type: Spontaneous
  Country: US (occurrence: US)
  Receive Date: 20140902
  Receipt Date: 20140902
  Transmission Date: 20150326
  Serious: Yes (Death, Hospitalization)
  Sender: FDA-Public Use
  Company Number: US-SA-2014SA115134

PATIENT
  Age: 46 Year
  Sex: Female

DRUGS (3)
  1. AMLODIPINE [Suspect]
     Active Substance: AMLODIPINE BESYLATE
     Route: 065
  2. ATENOLOL. [Suspect]
     Active Substance: ATENOLOL
     Route: 065
  3. ZOLPIDEM [Suspect]
     Active Substance: ZOLPIDEM\ZOLPIDEM TARTRATE
     Route: 065

REACTIONS (8)
  - Intestinal ischaemia [Fatal]
  - Overdose [Unknown]
  - Blood pressure decreased [Fatal]
  - Bradycardia [Fatal]
  - Multi-organ failure [Fatal]
  - Renal failure acute [Fatal]
  - Blood creatinine increased [Fatal]
  - Lactic acidosis [Fatal]
